FAERS Safety Report 25206366 (Version 1)
Quarter: 2025Q2

REPORT INFORMATION
  Report Type: Report from Study
  Country: US (occurrence: US)
  Receive Date: 20250417
  Receipt Date: 20250417
  Transmission Date: 20250717
  Serious: Yes (Other)
  Sender: NOVARTIS
  Company Number: US-002147023-NVSC2025US031785

PATIENT
  Age: 58 Year
  Sex: Female

DRUGS (1)
  1. LEQVIO [Suspect]
     Active Substance: INCLISIRAN SODIUM
     Indication: Product used for unknown indication
     Route: 058

REACTIONS (15)
  - Diverticulitis [Unknown]
  - Blister [Unknown]
  - Injection site vesicles [Unknown]
  - Injection site rash [Not Recovered/Not Resolved]
  - Injection site discolouration [Unknown]
  - Burning sensation [Unknown]
  - Pruritus [Unknown]
  - Pain [Unknown]
  - Low density lipoprotein increased [Unknown]
  - Irritable bowel syndrome [Unknown]
  - Myalgia [Unknown]
  - Herpes zoster [Unknown]
  - Fatigue [Unknown]
  - Arthralgia [Unknown]
  - Discomfort [Unknown]
